FAERS Safety Report 8731684 (Version 2)
Quarter: 2012Q4

REPORT INFORMATION
  Report Type: 
  Country: US (occurrence: US)
  Receive Date: 20120820
  Receipt Date: 20120912
  Transmission Date: 20130627
  Serious: Yes (Other)
  Sender: FDA-Public Use
  Company Number: US-PFIZER INC-2012197225

PATIENT
  Age: 63 Year
  Sex: Female

DRUGS (1)
  1. INLYTA [Suspect]
     Indication: RENAL CANCER
     Dosage: 5 mg (1 tab), 2x/day
     Route: 048
     Dates: start: 20120620

REACTIONS (3)
  - Convulsion [Unknown]
  - Headache [Unknown]
  - Decreased appetite [Unknown]
